FAERS Safety Report 8229821 (Version 8)
Quarter: 2015Q3

REPORT INFORMATION
  Report Type: Report from Study
  Country: CA (occurrence: CA)
  Receive Date: 20111104
  Receipt Date: 20150827
  Transmission Date: 20151125
  Serious: Yes (Other)
  Sender: FDA-Public Use
  Company Number: CA-ROCHE-GNE274406

PATIENT
  Age: 52 Year
  Sex: Female
  Weight: 55.84 kg

DRUGS (7)
  1. OMALIZUMAB [Suspect]
     Active Substance: OMALIZUMAB
     Indication: ASTHMA
     Dosage: 300 MG, 1/MONTH
     Route: 058
     Dates: start: 20070607
  2. OMALIZUMAB [Suspect]
     Active Substance: OMALIZUMAB
     Dosage: 300 MG, 1/MONTH
     Route: 058
     Dates: start: 20070801
  3. OMALIZUMAB [Suspect]
     Active Substance: OMALIZUMAB
     Dosage: 300 MG, 1/MONTH
     Route: 058
     Dates: start: 20100210
  4. SYNTHROID [Concomitant]
     Active Substance: LEVOTHYROXINE SODIUM
     Indication: PRODUCT USED FOR UNKNOWN INDICATION
  5. OMALIZUMAB [Suspect]
     Active Substance: OMALIZUMAB
     Route: 058
     Dates: start: 20140811
  6. FIORINAL (CANADA) [Concomitant]
  7. CODEINE [Concomitant]
     Active Substance: CODEINE

REACTIONS (19)
  - Ligament rupture [Unknown]
  - Nasal congestion [Unknown]
  - Tendonitis [Unknown]
  - Thyroid cancer [Unknown]
  - Feeling hot [Unknown]
  - Erythema [Unknown]
  - Limb injury [Unknown]
  - Fall [Unknown]
  - Injection site reaction [Unknown]
  - Ligament sprain [Unknown]
  - Induration [Unknown]
  - Blood pressure decreased [Unknown]
  - Brain neoplasm benign [Unknown]
  - Weight decreased [Unknown]
  - Nervousness [Unknown]
  - Hypersensitivity [Unknown]
  - Headache [Unknown]
  - Benign ovarian tumour [Unknown]
  - Wound [Unknown]

NARRATIVE: CASE EVENT DATE: 20081212
